FAERS Safety Report 4929432-X (Version None)
Quarter: 2006Q1

REPORT INFORMATION
  Report Type: 
  Country: None (occurrence: None)
  Receive Date: 20060127
  Receipt Date: 20051209
  Transmission Date: 20060701
  Serious: Yes (Other)
  Sender: FDA-Public Use
  Company Number: 2005167766

PATIENT
  Age: 31 Year
  Sex: Female

DRUGS (3)
  1. LYRICA [Suspect]
     Indication: ILL-DEFINED DISORDER
     Dosage: 150 MG (75 MG, 2 IN 1 D)
  2. MORPHINE [Suspect]
     Indication: ILL-DEFINED DISORDER
     Dosage: 60 MG (1 IN 1 D)
  3. PROZAC [Concomitant]

REACTIONS (2)
  - DYSURIA [None]
  - URINARY RETENTION [None]
